FAERS Safety Report 24458649 (Version 1)
Quarter: 2024Q4

REPORT INFORMATION
  Report Type: Report from Study
  Country: US (occurrence: US)
  Receive Date: 20241018
  Receipt Date: 20241018
  Transmission Date: 20250115
  Serious: No
  Sender: ROCHE
  Company Number: US-ROCHE-3520153

PATIENT
  Age: 45 Year
  Sex: Female
  Weight: 94.8 kg

DRUGS (3)
  1. RITUXAN [Suspect]
     Active Substance: RITUXIMAB
     Indication: Rheumatoid arthritis
     Route: 042
     Dates: start: 2018
  2. RITUXAN [Suspect]
     Active Substance: RITUXIMAB
     Indication: Systemic lupus erythematosus
  3. BENLYSTA [Suspect]
     Active Substance: BELIMUMAB
     Indication: Systemic lupus erythematosus
     Route: 065

REACTIONS (6)
  - Lethargy [Unknown]
  - COVID-19 [Unknown]
  - Pneumonia [Unknown]
  - Fatigue [Unknown]
  - Cough [Unknown]
  - Systemic lupus erythematosus rash [Unknown]

NARRATIVE: CASE EVENT DATE: 20201001
